FAERS Safety Report 4623008-X (Version None)
Quarter: 2005Q1

REPORT INFORMATION
  Report Type: 
  Country: None (occurrence: None)
  Receive Date: 20050329
  Receipt Date: 20050315
  Transmission Date: 20050727
  Serious: Yes (Life-Threatening)
  Sender: FDA-Public Use
  Company Number: 2005-BP-03752NB

PATIENT
  Age: 72 Year
  Sex: Male

DRUGS (3)
  1. MOBIC CAPSULES, 10MG (MELOXICAM) (TA) [Suspect]
     Indication: PERIARTHRITIS
     Dosage: 10 MG (10 MG) PO
     Route: 048
     Dates: start: 20050215, end: 20050220
  2. XYLOCAINE (LIDOCAINE HYDROCHLORIDE) (UNK) [Concomitant]
  3. KETOPROFEN (TTS) [Concomitant]

REACTIONS (2)
  - GASTRIC ULCER HAEMORRHAGE [None]
  - HAEMATEMESIS [None]
